FAERS Safety Report 10045120 (Version 1)
Quarter: 2014Q1

REPORT INFORMATION
  Report Type: Spontaneous
  Country: CA (occurrence: CA)
  Receive Date: 20140328
  Receipt Date: 20140328
  Transmission Date: 20141002
  Serious: Yes (Other)
  Sender: FDA-Public Use
  Company Number: CA-ELI_LILLY_AND_COMPANY-CA201403008535

PATIENT
  Age: 72 Year
  Sex: Female

DRUGS (8)
  1. GEMZAR [Suspect]
     Indication: OVARIAN CANCER
     Dosage: UNK
     Dates: start: 20140219
  2. AVASTIN [Suspect]
     Indication: OVARIAN CANCER STAGE III
     Dosage: 487 MG, UNK
     Dates: start: 20140313
  3. MAGNESIUM [Concomitant]
  4. CALCIUM [Concomitant]
  5. VITAMIN D [Concomitant]
  6. PANTOLOC                           /01263204/ [Concomitant]
  7. SENOKOT [Concomitant]
  8. COLACE [Concomitant]
     Dosage: UNK, PRN

REACTIONS (4)
  - Ascites [Unknown]
  - Platelet count decreased [Unknown]
  - Local swelling [Unknown]
  - Fatigue [Unknown]
